FAERS Safety Report 8059952-3 (Version None)
Quarter: 2012Q1

REPORT INFORMATION
  Report Type: 
  Country: None (occurrence: None)
  Receive Date: 20120120
  Receipt Date: 20120112
  Transmission Date: 20120608
  Serious: Yes (Hospitalization, Other)
  Sender: FDA-Public Use
  Company Number: PHFR2011GB05447

PATIENT
  Sex: Female

DRUGS (13)
  1. SIMVASTATIN [Concomitant]
     Dosage: 40 MG/DAY
     Route: 048
  2. OXYBUTYNIN [Concomitant]
     Dosage: 20 MG/DAY
     Route: 048
  3. INSULATARD NPH HUMAN [Concomitant]
     Dosage: 30 IU/DAY
     Route: 058
  4. CLOTRIMAZOLE [Concomitant]
     Route: 061
  5. DIPROBASE CREAM [Concomitant]
     Route: 061
  6. LANSOPRAZOLE [Concomitant]
     Dosage: 30 MG/DAY
  7. ANTIPSYCHOTICS [Concomitant]
  8. CLOZARIL [Suspect]
     Indication: SCHIZOPHRENIA
     Dosage: 325 MG/DAY
     Route: 048
     Dates: start: 19980817
  9. CLOPIDOGREL [Concomitant]
     Dosage: 75 MG/DAY
  10. FLAVOXATE [Concomitant]
     Dosage: 600 MG/DAY
     Route: 048
  11. THIAMINE HCL [Concomitant]
     Dosage: 200 MG/DAY
     Route: 048
  12. BACLOFEN [Concomitant]
     Dosage: 20 MG, UNK
  13. ACETAMINOPHEN [Concomitant]
     Dosage: 4 G/DAY

REACTIONS (6)
  - NEUTROPHIL COUNT DECREASED [None]
  - PNEUMONIA ASPIRATION [None]
  - METASTASIS [None]
  - LOWER RESPIRATORY TRACT INFECTION [None]
  - LYMPHOMA [None]
  - WHITE BLOOD CELL COUNT DECREASED [None]
